FAERS Safety Report 25681161 (Version 1)
Quarter: 2025Q3

REPORT INFORMATION
  Report Type: Spontaneous
  Country: US (occurrence: None)
  Receive Date: 20250814
  Receipt Date: 20250814
  Transmission Date: 20251021
  Serious: No
  Sender: FDA-CTU
  Company Number: None

PATIENT
  Age: 45 Year
  Sex: Female

DRUGS (3)
  1. TUBERSOL [Suspect]
     Active Substance: TUBERCULIN PURIFIED PROTEIN DERIVATIVE
  2. FLONASE [Concomitant]
     Active Substance: FLUTICASONE PROPIONATE
  3. VITAMIN D [Concomitant]
     Active Substance: VITAMIN D NOS

REACTIONS (2)
  - Product storage error [None]
  - Poor quality product administered [None]

NARRATIVE: CASE EVENT DATE: 20250601
